FAERS Safety Report 13874148 (Version 5)
Quarter: 2018Q1

REPORT INFORMATION
  Report Type: Spontaneous
  Country: US (occurrence: US)
  Receive Date: 20170816
  Receipt Date: 20180222
  Transmission Date: 20180508
  Serious: No
  Sender: FDA-Public Use
  Company Number: US-ACTELION-A-US2017-158056

PATIENT
  Age: 59 Year
  Sex: Female

DRUGS (2)
  1. OPSUMIT [Suspect]
     Active Substance: MACITENTAN
     Indication: PULMONARY ARTERIAL HYPERTENSION
     Dosage: 10 MG, QD
     Route: 048
     Dates: start: 20170803
  2. ADEMPAS [Suspect]
     Active Substance: RIOCIGUAT
     Indication: PRODUCT USED FOR UNKNOWN INDICATION
     Route: 065

REACTIONS (11)
  - Oral herpes [Unknown]
  - Headache [Unknown]
  - Oedema peripheral [Unknown]
  - Dyspnoea [Unknown]
  - Pain in jaw [Unknown]
  - Ear pain [Unknown]
  - Face oedema [Unknown]
  - Chest pain [Unknown]
  - Peripheral swelling [Unknown]
  - Gastrooesophageal reflux disease [Unknown]
  - Dizziness [Unknown]
